FAERS Safety Report 7118905-X (Version None)
Quarter: 2010Q4

REPORT INFORMATION
  Report Type: 
  Country: None (occurrence: None)
  Receive Date: 20101123
  Receipt Date: 20101116
  Transmission Date: 20110411
  Serious: Yes (Hospitalization)
  Sender: FDA-Public Use
  Company Number: B0684685A

PATIENT
  Sex: Male
  Weight: 95 kg

DRUGS (8)
  1. ARZERRA [Suspect]
     Route: 042
     Dates: start: 20100215, end: 20100801
  2. VALACYCLOVIR HYDROCHLORIDE [Concomitant]
     Route: 065
  3. BACTRIM [Concomitant]
     Route: 065
  4. XANAX [Concomitant]
     Route: 065
  5. PROZAC [Concomitant]
     Route: 065
  6. TAHOR [Concomitant]
     Route: 065
  7. POLYGAM S/D [Concomitant]
     Route: 065
  8. INSULIN [Concomitant]
     Route: 065

REACTIONS (5)
  - ABDOMINAL PAIN [None]
  - ASTHENIA [None]
  - DEFAECATION URGENCY [None]
  - DIARRHOEA [None]
  - WEIGHT DECREASED [None]
